FAERS Safety Report 6899888 (Version 2)
Quarter: 2016Q4

REPORT INFORMATION
  Report Type: Spontaneous
  Country: US (occurrence: US)
  Receive Date: 20090203
  Receipt Date: 20161128
  Transmission Date: 20170207
  Serious: Yes (Other)
  Sender: FDA-Public Use
  Company Number: US-ELI_LILLY_AND_COMPANY-US200901004102

PATIENT
  Age: 32 Year
  Sex: Female
  Weight: 83.9 kg

DRUGS (2)
  1. ALPRAZOLAM. [Concomitant]
     Active Substance: ALPRAZOLAM
     Dosage: UNK, UNKNOWN
     Route: 065
  2. SYMBYAX [Suspect]
     Active Substance: FLUOXETINE HYDROCHLORIDE\OLANZAPINE
     Indication: PRODUCT USED FOR UNKNOWN INDICATION
     Dosage: 1 D/F, UNK
     Route: 065

REACTIONS (11)
  - Fall [Recovered/Resolved]
  - Incorrect dose administered [Unknown]
  - Dizziness [Unknown]
  - Joint injury [Unknown]
  - Disorientation [Unknown]
  - Osteochondral fracture [Recovered/Resolved]
  - Head injury [Unknown]
  - Back pain [Unknown]
  - Musculoskeletal pain [Unknown]
  - Contusion [Unknown]
  - Neck pain [Unknown]

NARRATIVE: CASE EVENT DATE: 20080124
